FAERS Safety Report 6920028-7 (Version None)
Quarter: 2010Q3

REPORT INFORMATION
  Report Type: 
  Country: None (occurrence: None)
  Receive Date: 20100811
  Receipt Date: 20100805
  Transmission Date: 20110219
  Serious: Yes (Other)
  Sender: FDA-Public Use
  Company Number: CHPA2010US12699

PATIENT
  Age: 73 Year
  Sex: Female
  Weight: 65.76 kg

DRUGS (1)
  1. EXCEDRIN ES BACK + BODY (NCH) [Suspect]
     Indication: BACK PAIN
     Dosage: 2 CAPLETS, ONCE SINGLE
     Route: 048
     Dates: start: 20100730, end: 20100730

REACTIONS (3)
  - DIARRHOEA [None]
  - GASTROINTESTINAL PAIN [None]
  - HAEMATOCHEZIA [None]
